FAERS Safety Report 5034807-7 (Version None)
Quarter: 2006Q2

REPORT INFORMATION
  Report Type: 
  Country: None (occurrence: None)
  Receive Date: 20060510
  Receipt Date: 20060112
  Transmission Date: 20061013
  Serious: Yes (Hospitalization)
  Sender: FDA-Public Use
  Company Number: 2006SP000231

PATIENT
  Age: 1 Year
  Sex: Male
  Weight: 10.8863 kg

DRUGS (1)
  1. XOPENEX [Suspect]
     Dosage: 0.63 MG/3ML;ORAL
     Route: 048

REACTIONS (4)
  - CONVULSION [None]
  - PSYCHOMOTOR SEIZURES [None]
  - PYREXIA [None]
  - STREPTOCOCCAL BACTERAEMIA [None]
